FAERS Safety Report 16170808 (Version 1)
Quarter: 2019Q2

REPORT INFORMATION
  Report Type: Spontaneous
  Country: ES (occurrence: ES)
  Receive Date: 20190408
  Receipt Date: 20190408
  Transmission Date: 20190711
  Serious: Yes (Hospitalization)
  Sender: FDA-Public Use
  Company Number: ES-MYLANLABS-2019M1031507

PATIENT
  Age: 73 Year
  Sex: Female

DRUGS (6)
  1. RANITIDINE. [Suspect]
     Active Substance: RANITIDINE
     Indication: PROPHYLAXIS
     Dosage: 150 MILLIGRAM, QD
     Route: 048
     Dates: start: 20180718, end: 20180731
  2. NIFEDIPINO [Suspect]
     Active Substance: NIFEDIPINE
     Indication: HYPERTENSION
     Dosage: 30 MILLIGRAM, QD
     Route: 048
     Dates: start: 20180719, end: 20180730
  3. ATORVASTATIN [Suspect]
     Active Substance: ATORVASTATIN
     Indication: EMBOLIC STROKE
     Dosage: 80 MILLIGRAM, QD
     Route: 048
     Dates: start: 20180715, end: 20180806
  4. ENALAPRIL [Suspect]
     Active Substance: ENALAPRIL
     Indication: HYPERTENSION
     Dosage: 20 MILLIGRAM, QD
     Route: 048
     Dates: start: 20180714, end: 20180730
  5. METFORMIN [Suspect]
     Active Substance: METFORMIN HYDROCHLORIDE
     Indication: DIABETES MELLITUS
     Dosage: 850 MILLIGRAM, Q8H
     Route: 048
     Dates: start: 20180716, end: 20180729
  6. CLOPIDOGREL [Suspect]
     Active Substance: CLOPIDOGREL BISULFATE
     Indication: EMBOLIC STROKE
     Dosage: 75 MILLIGRAM, QD
     Route: 048
     Dates: start: 20180718, end: 20180806

REACTIONS (1)
  - Hepatitis cholestatic [Recovered/Resolved]

NARRATIVE: CASE EVENT DATE: 20180728
